FAERS Safety Report 16171771 (Version 1)
Quarter: 2019Q2

REPORT INFORMATION
  Report Type: Spontaneous
  Country: CN (occurrence: CN)
  Receive Date: 20190408
  Receipt Date: 20190408
  Transmission Date: 20190711
  Serious: Yes (Other)
  Sender: FDA-Public Use
  Company Number: CN-BAXTER-2019BAX006645

PATIENT
  Age: 73 Year
  Sex: Female
  Weight: 41 kg

DRUGS (6)
  1. SODIUM CHLORIDE. [Suspect]
     Active Substance: SODIUM CHLORIDE
     Indication: MEDICATION DILUTION
     Dosage: CYCLOPHOSPHAMIDE FOR INJECTION 0.8 G + 0.9% SODIUM CHLORIDE INJECTION IV INJECTION
     Route: 042
     Dates: start: 20181204, end: 20181205
  2. ENDOXAN [Suspect]
     Active Substance: CYCLOPHOSPHAMIDE
     Indication: GASTROINTESTINAL LYMPHOMA
     Dosage: CYCLOPHOSPHAMIDE FOR INJECTION 0.8 G + 0.9% SODIUM CHLORIDE INJECTION IV INJECTION
     Route: 042
     Dates: start: 20181204, end: 20181205
  3. EPIRUBICIN HYDROCHLORIDE. [Suspect]
     Active Substance: EPIRUBICIN HYDROCHLORIDE
     Indication: GASTROINTESTINAL LYMPHOMA
     Dosage: EPIRUBICIN FOR INJECTION 80MG + 5% GS 30 ML IV INJECTION
     Route: 042
     Dates: start: 20181204, end: 20181205
  4. GLUCOSE [Suspect]
     Active Substance: DEXTROSE
     Indication: MEDICATION DILUTION
     Dosage: EPIRUBICIN FOR INJECTION 80MG + 5% GS 30 ML IV INJECTION
     Route: 042
     Dates: start: 20181204, end: 20181205
  5. ENDOXAN [Suspect]
     Active Substance: CYCLOPHOSPHAMIDE
     Indication: B-CELL LYMPHOMA
  6. EPIRUBICIN HYDROCHLORIDE. [Suspect]
     Active Substance: EPIRUBICIN HYDROCHLORIDE
     Indication: B-CELL LYMPHOMA

REACTIONS (4)
  - Bone marrow failure [Recovering/Resolving]
  - B-cell lymphoma [Unknown]
  - Gastrointestinal lymphoma [Unknown]
  - Condition aggravated [Unknown]

NARRATIVE: CASE EVENT DATE: 20181213
